FAERS Safety Report 22131004 (Version 1)
Quarter: 2023Q1

REPORT INFORMATION
  Report Type: Spontaneous
  Country: US (occurrence: US)
  Receive Date: 20230323
  Receipt Date: 20230323
  Transmission Date: 20230418
  Serious: Yes (Hospitalization)
  Sender: FDA-Public Use
  Company Number: US-INNOCOLL BIOTHERAPEUTICS-2022INN00111

PATIENT
  Age: 23 Year
  Sex: Female

DRUGS (3)
  1. XARACOLL [Suspect]
     Active Substance: BUPIVACAINE
     Indication: Procedural pain
     Dosage: 3 IMPLANTS (300 MG) IN ABDOMEN, ONCE
     Dates: start: 20221120
  2. MOTRIN [Concomitant]
     Active Substance: IBUPROFEN
  3. PERCOCET [Concomitant]
     Active Substance: ACETAMINOPHEN\OXYCODONE HYDROCHLORIDE

REACTIONS (2)
  - Postoperative wound infection [Not Recovered/Not Resolved]
  - Off label use [Recovered/Resolved]

NARRATIVE: CASE EVENT DATE: 20221101
